FAERS Safety Report 5884200-X (Version None)
Quarter: 2008Q3

REPORT INFORMATION
  Report Type: 
  Country: None (occurrence: None)
  Receive Date: 20080915
  Receipt Date: 20080911
  Transmission Date: 20090109
  Serious: Yes (Other)
  Sender: FDA-Public Use
  Company Number: US-ASTRAZENECA-2008UW18910

PATIENT
  Age: 75 Year
  Sex: Male
  Weight: 74.8 kg

DRUGS (6)
  1. CRESTOR [Suspect]
     Route: 048
  2. TOPROL-XL [Concomitant]
  3. AMIODARONE HCL [Concomitant]
  4. EFFEXOR [Concomitant]
  5. LASIX [Concomitant]
  6. LANOXIN [Concomitant]

REACTIONS (2)
  - HEART VALVE REPLACEMENT [None]
  - VASCULAR GRAFT [None]
